FAERS Safety Report 13138515 (Version 1)
Quarter: 2017Q1

REPORT INFORMATION
  Report Type: Spontaneous
  Country: GR (occurrence: GR)
  Receive Date: 20170123
  Receipt Date: 20170123
  Transmission Date: 20170428
  Serious: Yes (Other)
  Sender: FDA-Public Use
  Company Number: PHHY2017GR007553

PATIENT
  Age: 65 Year
  Sex: Female

DRUGS (1)
  1. REVOLADE [Suspect]
     Active Substance: ELTROMBOPAG
     Indication: IMMUNE THROMBOCYTOPENIC PURPURA
     Dosage: 50 MG, UNK
     Route: 065

REACTIONS (2)
  - Respiratory tract infection [Unknown]
  - Rash [Unknown]
